FAERS Safety Report 9177470 (Version 1)
Quarter: 2013Q1

REPORT INFORMATION
  Report Type: Spontaneous
  Country: GB (occurrence: None)
  Receive Date: 20130319
  Receipt Date: 20130319
  Transmission Date: 20140127
  Serious: Yes (Other)
  Sender: FDA-Public Use
  Company Number: 2013-04795

PATIENT
  Age: 27 Year
  Sex: Female

DRUGS (4)
  1. PARACETAMOL (UNKONWN) (PARACETAMOL) UNK, UNKUNK [Suspect]
     Indication: HEADACHE
     Dosage: 2 DF, UNKNOWN, ORAL
     Route: 048
  2. CAFFEIENE (CAFFEINE) [Suspect]
     Indication: HEADACHE
     Dosage: 2 DF, UNKNOWN, ORAL
     Route: 048
  3. IBUPROFEN (IBUPROFEN) [Concomitant]
  4. FOLIC ACID (FOLIC ACID) [Concomitant]

REACTIONS (2)
  - Dizziness [None]
  - Pyrexia [None]
